FAERS Safety Report 16839852 (Version 2)
Quarter: 2019Q3

REPORT INFORMATION
  Report Type: Spontaneous
  Country: US (occurrence: US)
  Receive Date: 20190923
  Receipt Date: 20190925
  Transmission Date: 20191005
  Serious: Yes (Death, Other)
  Sender: FDA-Public Use
  Company Number: US-PFIZER INC-2019408574

PATIENT
  Age: 62 Year
  Sex: Female
  Weight: 62.13 kg

DRUGS (3)
  1. MORPHINE [Concomitant]
     Active Substance: MORPHINE
     Indication: DYSPNOEA
  2. MORPHINE [Concomitant]
     Active Substance: MORPHINE
     Indication: PAIN
     Dosage: 1 MG, UNK (1MG EVERY TWO HOURS LIQUID)
     Dates: start: 20190515
  3. NIVESTYM [Suspect]
     Active Substance: FILGRASTIM-AAFI
     Dosage: UNK

REACTIONS (4)
  - Lung cancer metastatic [Fatal]
  - Weight decreased [Unknown]
  - Pneumothorax [Unknown]
  - Malaise [Unknown]

NARRATIVE: CASE EVENT DATE: 201810
